FAERS Safety Report 7655907-9 (Version None)
Quarter: 2011Q3

REPORT INFORMATION
  Report Type: 
  Country: None (occurrence: None)
  Receive Date: 20110804
  Receipt Date: 20110804
  Transmission Date: 20111222
  Serious: Yes (Disabling)
  Sender: FDA-Public Use
  Company Number: None

PATIENT
  Age: 72 Year
  Sex: Male
  Weight: 102.51 kg

DRUGS (2)
  1. LIDOCAINE [Suspect]
     Indication: ANAESTHESIA
     Dosage: 1-10ML
     Route: 047
     Dates: start: 20110713, end: 20110713
  2. PROPARACAINE HCL [Concomitant]
     Indication: ANAESTHESIA
     Dosage: 1 DROP
     Route: 047
     Dates: start: 20110713, end: 20110713

REACTIONS (1)
  - TOXIC ANTERIOR SEGMENT SYNDROME [None]
